FAERS Safety Report 7571762-X (Version None)
Quarter: 2011Q2

REPORT INFORMATION
  Report Type: 
  Country: None (occurrence: None)
  Receive Date: 20110624
  Receipt Date: 20110615
  Transmission Date: 20111010
  Serious: Yes (Hospitalization)
  Sender: FDA-Public Use
  Company Number: BR-ASTRAZENECA-2011SE36839

PATIENT
  Age: 63 Year
  Sex: Female

DRUGS (7)
  1. ASPIRIN [Concomitant]
     Route: 048
     Dates: start: 20101201
  2. METFORMIN HYDROCHLORIDE [Concomitant]
     Indication: DIABETES MELLITUS
     Route: 048
     Dates: start: 20101201
  3. EUTONIS [Concomitant]
     Route: 048
     Dates: start: 20101201
  4. AGLUCOSE [Concomitant]
     Indication: DIABETES MELLITUS
     Route: 048
     Dates: start: 20101201
  5. ATACAND COMB [Suspect]
     Indication: HYPERTENSION
     Dosage: 16+5 MG DAILY
     Route: 048
     Dates: start: 20101201, end: 20110401
  6. ATACAND HCT [Suspect]
     Indication: HYPERTENSION
     Dosage: 16+12.5 MG DAILY
     Route: 048
     Dates: start: 20110401
  7. CRESTOR [Suspect]
     Indication: HYPERCHLORAEMIA
     Route: 048
     Dates: start: 20110301

REACTIONS (6)
  - WEIGHT DECREASED [None]
  - DRUG INEFFECTIVE [None]
  - BLOOD PRESSURE INADEQUATELY CONTROLLED [None]
  - BLOOD CHOLESTEROL INCREASED [None]
  - CORONARY ARTERY BYPASS [None]
  - ARTERIAL BYPASS OPERATION [None]
